FAERS Safety Report 10570230 (Version 1)
Quarter: 2014Q4

REPORT INFORMATION
  Report Type: Spontaneous
  Country: US (occurrence: None)
  Receive Date: 20141106
  Receipt Date: 20141106
  Transmission Date: 20150529
  Serious: Yes (Other)
  Sender: FDA-Public Use
  Company Number: None

PATIENT
  Age: 75 Year
  Sex: Male

DRUGS (1)
  1. ZOSTRIX ORIGINAL STRENGTH [Suspect]
     Active Substance: CAPSAICIN
     Indication: DRY SKIN
     Route: 061
     Dates: start: 201409, end: 201409

REACTIONS (3)
  - Skin exfoliation [None]
  - Skin burning sensation [None]
  - Skin ulcer [None]

NARRATIVE: CASE EVENT DATE: 20140806
